FAERS Safety Report 7687376-7 (Version None)
Quarter: 2011Q3

REPORT INFORMATION
  Report Type: 
  Country: None (occurrence: None)
  Receive Date: 20110816
  Receipt Date: 20110803
  Transmission Date: 20111222
  Serious: Yes (Death, Other)
  Sender: FDA-Public Use
  Company Number: US-BAYER-200913220NA

PATIENT
  Age: 60 Year
  Sex: Male
  Weight: 118 kg

DRUGS (25)
  1. MULTIHANCE [Suspect]
     Indication: ANGIOGRAM
  2. LANTUS [Concomitant]
  3. HUMALOG [Concomitant]
  4. ALPRAZOLAM [Concomitant]
  5. MAGNEVIST [Suspect]
     Indication: ANGIOGRAM
     Dosage: 10 ML, UNK
     Dates: start: 20060810, end: 20060810
  6. PROHANCE [Suspect]
     Indication: NUCLEAR MAGNETIC RESONANCE IMAGING
  7. OPTIMARK [Suspect]
     Indication: ANGIOGRAM
  8. METOPROLOL TARTRATE [Concomitant]
     Dosage: UNK
  9. MAGNEVIST [Suspect]
     Dosage: 10 ML, ONCE
     Route: 042
     Dates: start: 20080326, end: 20080326
  10. METFORMIN HCL [Concomitant]
  11. OMNISCAN [Suspect]
     Dosage: 20 ML, ONCE
     Route: 042
     Dates: start: 20051117, end: 20051117
  12. ENALAPRIL MALEATE [Concomitant]
  13. VENLAFAXINE [Concomitant]
  14. HYDROCHLOROTHIAZIDE [Concomitant]
  15. CRESTOR [Concomitant]
  16. MAGNEVIST [Suspect]
  17. OMNISCAN [Suspect]
     Indication: ANGIOGRAM
     Dosage: 50 ML, ONCE
     Dates: start: 19991217, end: 19991217
  18. OPTIMARK [Suspect]
     Indication: NUCLEAR MAGNETIC RESONANCE IMAGING
  19. PLAVIX [Concomitant]
  20. ASPIRIN [ACETYLSALICYLIC ACID,CALCIUM CARBONATE,CITRIC ACID] [Concomitant]
  21. MAGNEVIST [Suspect]
     Indication: NUCLEAR MAGNETIC RESONANCE IMAGING
     Dosage: UNK UNK, ONCE
     Dates: start: 19960712, end: 19960712
  22. OMNISCAN [Suspect]
     Indication: NUCLEAR MAGNETIC RESONANCE IMAGING
     Dosage: 20 ML, ONCE
     Route: 042
     Dates: start: 20030905, end: 20030905
  23. MULTIHANCE [Suspect]
     Indication: NUCLEAR MAGNETIC RESONANCE IMAGING
  24. PROHANCE [Suspect]
     Indication: ANGIOGRAM
  25. VITAMIN TAB [Concomitant]

REACTIONS (17)
  - GENERAL PHYSICAL HEALTH DETERIORATION [None]
  - PAIN IN EXTREMITY [None]
  - LIVER DISORDER [None]
  - CEREBROVASCULAR ACCIDENT [None]
  - MOBILITY DECREASED [None]
  - DEPRESSION [None]
  - ANXIETY [None]
  - PAIN [None]
  - EMOTIONAL DISTRESS [None]
  - ARTHRALGIA [None]
  - SKIN DISORDER [None]
  - RENAL DISORDER [None]
  - CARDIAC DISORDER [None]
  - SKIN FIBROSIS [None]
  - DISCOMFORT [None]
  - NEPHROGENIC SYSTEMIC FIBROSIS [None]
  - RENAL FAILURE [None]
